FAERS Safety Report 25419948 (Version 1)
Quarter: 2025Q2

REPORT INFORMATION
  Report Type: Spontaneous
  Country: US (occurrence: US)
  Receive Date: 20250610
  Receipt Date: 20250610
  Transmission Date: 20250716
  Serious: No
  Sender: SANOFI AVENTIS
  Company Number: US-SA-2025SA163890

PATIENT
  Sex: Male

DRUGS (1)
  1. DUPIXENT [Suspect]
     Active Substance: DUPILUMAB
     Indication: Dermatitis atopic
     Dosage: 300 MG, QOW
     Route: 058
     Dates: start: 201806

REACTIONS (4)
  - Dermatitis atopic [Recovering/Resolving]
  - Dry skin [Recovering/Resolving]
  - Skin fissures [Recovering/Resolving]
  - Pain of skin [Recovering/Resolving]

NARRATIVE: CASE EVENT DATE: 20250501
